FAERS Safety Report 5742292-2 (Version None)
Quarter: 2008Q2

REPORT INFORMATION
  Report Type: 
  Country: None (occurrence: None)
  Receive Date: 20080515
  Receipt Date: 20080505
  Transmission Date: 20081010
  Serious: Yes (Life-Threatening, Hospitalization)
  Sender: FDA-Public Use
  Company Number: 200805AGG00806

PATIENT
  Age: 53 Year
  Sex: Male

DRUGS (3)
  1. TIROFIBAN HYDROCHLORIDE (TIROFIBAN HCL) [Suspect]
     Indication: ACUTE MYOCARDIAL INFARCTION
     Dosage: (25 MCG/KG) (INTRAVENOUS BOLUS)
     Route: 040
     Dates: start: 20071022, end: 20071022
  2. TIROFIBAN HYDROCHLORIDE [Suspect]
     Dosage: (.015 MCG/KG) (INTRAVENOUS DRIP)
     Route: 041
     Dates: start: 20071022, end: 20071023
  3. CLOPIDOGREL BISULFATE [Concomitant]

REACTIONS (3)
  - ACUTE MYOCARDIAL INFARCTION [None]
  - CARDIAC FAILURE CONGESTIVE [None]
  - THROMBOSIS IN DEVICE [None]
